FAERS Safety Report 16165365 (Version 1)
Quarter: 2019Q2

REPORT INFORMATION
  Report Type: Spontaneous
  Country: DE (occurrence: DE)
  Receive Date: 20190405
  Receipt Date: 20190405
  Transmission Date: 20190711
  Serious: Yes (Other)
  Sender: FDA-Public Use
  Company Number: PHHY2019DE069312

PATIENT

DRUGS (4)
  1. LEVETIRACETAM. [Suspect]
     Active Substance: LEVETIRACETAM
     Indication: EPILEPSY
     Route: 065
  2. LACOSAMIDE. [Suspect]
     Active Substance: LACOSAMIDE
     Indication: EPILEPSY
     Dosage: 50-100 MG QD
     Route: 065
  3. LACOSAMIDE. [Suspect]
     Active Substance: LACOSAMIDE
     Dosage: 300-400 MG QD
     Route: 065
  4. LACOSAMIDE. [Suspect]
     Active Substance: LACOSAMIDE
     Dosage: 700 MG, QD
     Route: 065

REACTIONS (20)
  - Nystagmus [Unknown]
  - Drug ineffective [Unknown]
  - Sedation [Unknown]
  - Insomnia [Unknown]
  - Dizziness [Unknown]
  - Tremor [Unknown]
  - Ataxia [Unknown]
  - Nausea [Unknown]
  - Seizure [Unknown]
  - Vertigo [Unknown]
  - Headache [Unknown]
  - Off label use [Unknown]
  - Dysarthria [Unknown]
  - Cognitive disorder [Unknown]
  - Overdose [Unknown]
  - Adverse event [Unknown]
  - Diplopia [Unknown]
  - Behaviour disorder [Unknown]
  - Skin irritation [Unknown]
  - Diarrhoea [Unknown]
